FAERS Safety Report 17530410 (Version 1)
Quarter: 2020Q1

REPORT INFORMATION
  Report Type: Spontaneous
  Country: PL (occurrence: PL)
  Receive Date: 20200312
  Receipt Date: 20200312
  Transmission Date: 20200409
  Serious: Yes (Hospitalization)
  Sender: FDA-Public Use
  Company Number: PHHY2019PL163752

PATIENT
  Age: 46 Year
  Sex: Male

DRUGS (3)
  1. QUETIAPINE. [Suspect]
     Active Substance: QUETIAPINE
     Indication: SCHIZOPHRENIA
     Dosage: 200 MG, QD
     Route: 065
  2. LORAZEPAM. [Suspect]
     Active Substance: LORAZEPAM
     Indication: SCHIZOPHRENIA
     Dosage: 2 MG, QD
     Route: 065
  3. ARIPIPRAZOLE. [Suspect]
     Active Substance: ARIPIPRAZOLE
     Indication: SCHIZOPHRENIA
     Dosage: 15 MG, QD
     Route: 065

REACTIONS (8)
  - Drug ineffective [Recovered/Resolved]
  - Aggression [Unknown]
  - Schizophrenia [Recovered/Resolved]
  - Anxiety [Recovering/Resolving]
  - Mental impairment [Recovered/Resolved]
  - Condition aggravated [Unknown]
  - Agitation [Recovering/Resolving]
  - Feeling abnormal [Unknown]
